FAERS Safety Report 14240378 (Version 1)
Quarter: 2017Q4

REPORT INFORMATION
  Report Type: Spontaneous
  Country: CH (occurrence: CH)
  Receive Date: 20171130
  Receipt Date: 20171130
  Transmission Date: 20180321
  Serious: Yes (Other)
  Sender: FDA-Public Use
  Company Number: CH-PFIZER INC-2017513923

PATIENT
  Age: 72 Year
  Sex: Female

DRUGS (5)
  1. ANORO ELLIPTA [Suspect]
     Active Substance: UMECLIDINIUM BROMIDE\VILANTEROL TRIFENATATE
     Dosage: UNK UNK, QD
     Route: 055
  2. TRANXILIUM [Concomitant]
     Active Substance: CLORAZEPATE DIPOTASSIUM
     Dosage: 5 MG, QD
     Route: 048
  3. PANTOZOL [Suspect]
     Active Substance: PANTOPRAZOLE SODIUM
     Dosage: 20 MG, QD
     Route: 048
  4. LAROXYL [Suspect]
     Active Substance: AMITRIPTYLINE HYDROCHLORIDE
     Dosage: 4 GTT, BID
     Route: 048
     Dates: start: 201708
  5. EUTHYROX [Concomitant]
     Active Substance: LEVOTHYROXINE SODIUM
     Dosage: 75 UG, QD
     Route: 048

REACTIONS (1)
  - Electrocardiogram QT prolonged [Recovered/Resolved]

NARRATIVE: CASE EVENT DATE: 20171103
